FAERS Safety Report 6657153-4 (Version None)
Quarter: 2010Q1

REPORT INFORMATION
  Report Type: 
  Country: None (occurrence: None)
  Receive Date: 20100330
  Receipt Date: 20100323
  Transmission Date: 20100710
  Serious: Yes (Life-Threatening, Hospitalization, Other)
  Sender: FDA-Public Use
  Company Number: CN-NOVOPROD-305603

PATIENT
  Age: 48 Year

DRUGS (3)
  1. NOVOMIX 30 FLEXPEN [Suspect]
     Indication: TYPE 1 DIABETES MELLITUS
     Dosage: 16IU MORNING, 12IU EVENING
     Dates: start: 20100308
  2. NOVOMIX 30 FLEXPEN [Suspect]
     Dosage: UNK U, QD
     Dates: start: 20050101
  3. NOVOMIX 30 FLEXPEN [Suspect]
     Dosage: UNK

REACTIONS (4)
  - DEVICE FAILURE [None]
  - DIABETIC KETOACIDOSIS [None]
  - PRODUCT QUALITY ISSUE [None]
  - UPPER RESPIRATORY TRACT INFECTION [None]
